FAERS Safety Report 11180072 (Version 1)
Quarter: 2015Q2

REPORT INFORMATION
  Report Type: Spontaneous
  Country: US (occurrence: None)
  Receive Date: 20150610
  Receipt Date: 20150610
  Transmission Date: 20150821
  Serious: Yes (Hospitalization)
  Sender: FDA-Public Use
  Company Number: None

PATIENT
  Age: 45 Year
  Sex: Male
  Weight: 128.4 kg

DRUGS (1)
  1. CISPLATIN. [Suspect]
     Active Substance: CISPLATIN

REACTIONS (7)
  - Hyperhidrosis [None]
  - Vomiting [None]
  - Fall [None]
  - Hypoaesthesia [None]
  - Paraesthesia [None]
  - Subclavian steal syndrome [None]
  - Blindness [None]

NARRATIVE: CASE EVENT DATE: 20150131
